FAERS Safety Report 6649992-0 (Version None)
Quarter: 2010Q1

REPORT INFORMATION
  Report Type: 
  Country: None (occurrence: None)
  Receive Date: 20100324
  Receipt Date: 20100324
  Transmission Date: 20100710
  Serious: No
  Sender: FDA-Public Use
  Company Number: None

PATIENT
  Age: 49 Year
  Sex: Female

DRUGS (2)
  1. PRISTIQ [Suspect]
     Indication: BIPOLAR DISORDER
     Dosage: 40 MG 1 X DAILY
     Dates: start: 20100101, end: 20100301
  2. PRISTIQ [Suspect]
     Indication: DEPRESSION
     Dosage: 40 MG 1 X DAILY
     Dates: start: 20100101, end: 20100301

REACTIONS (7)
  - ANXIETY [None]
  - HEADACHE [None]
  - HYPERHIDROSIS [None]
  - HYPERTENSION [None]
  - INSOMNIA [None]
  - LIBIDO DECREASED [None]
  - WEIGHT INCREASED [None]
